FAERS Safety Report 10432999 (Version 2)
Quarter: 2015Q2

REPORT INFORMATION
  Report Type: Spontaneous
  Country: US (occurrence: None)
  Receive Date: 20140815
  Receipt Date: 20150625
  Transmission Date: 20150821
  Serious: No
  Sender: FDA-Public Use
  Company Number: A-US2014-102044

PATIENT
  Age: 64 Year
  Sex: Male

DRUGS (4)
  1. REMODULIN [Concomitant]
     Active Substance: TREPROSTINIL
  2. ADCIRCA [Concomitant]
     Active Substance: TADALAFIL
  3. OPSUMIT [Suspect]
     Active Substance: MACITENTAN
     Indication: PULMONARY ARTERIAL HYPERTENSION
     Route: 048
     Dates: start: 20140623
  4. WARFARIN (WARFARIN) [Concomitant]
     Active Substance: WARFARIN

REACTIONS (14)
  - Catheter site infection [None]
  - Constipation [None]
  - Catheter site discharge [None]
  - Anaemia [None]
  - Tremor [None]
  - Haematocrit decreased [None]
  - Catheter site pain [None]
  - Headache [None]
  - Feeling jittery [None]
  - Catheter site erythema [None]
  - Dizziness [None]
  - Fatigue [None]
  - Malaise [None]
  - Asthenia [None]
